APPROVED DRUG PRODUCT: TOPIRAMATE
Active Ingredient: TOPIRAMATE
Strength: 50MG
Dosage Form/Route: TABLET;ORAL
Application: A077905 | Product #002
Applicant: PLIVA HRVATSKA DOO
Approved: Mar 30, 2009 | RLD: No | RS: No | Type: DISCN